FAERS Safety Report 6270027-6 (Version None)
Quarter: 2009Q3

REPORT INFORMATION
  Report Type: 
  Country: None (occurrence: None)
  Receive Date: 20090714
  Receipt Date: 20090629
  Transmission Date: 20100115
  Serious: Yes (Life-Threatening, Hospitalization)
  Sender: FDA-Public Use
  Company Number: ADE2009-0701

PATIENT
  Age: 29 Year
  Sex: Male

DRUGS (4)
  1. CITALOPRAM HYDROBROMIDE [Suspect]
     Indication: DEPRESSION
     Dosage: 20MG, DAILY, ORAL
     Route: 048
     Dates: start: 20090105, end: 20090616
  2. ASPIRIN [Suspect]
     Indication: ABDOMINAL PAIN
     Dosage: 300MG, DAILY, ORAL
     Route: 048
     Dates: start: 20090610, end: 20090612
  3. BECONASE [Concomitant]
  4. CETIRIZINE [Concomitant]

REACTIONS (1)
  - GASTRIC ULCER PERFORATION [None]
